FAERS Safety Report 10103628 (Version 1)
Quarter: 2014Q2

REPORT INFORMATION
  Report Type: Spontaneous
  Country: FR (occurrence: FR)
  Receive Date: 20140424
  Receipt Date: 20140424
  Transmission Date: 20141212
  Serious: Yes (Hospitalization)
  Sender: FDA-Public Use
  Company Number: FR-DSJP-DSE-2014-106021

PATIENT
  Sex: 0

DRUGS (5)
  1. OLMETEC [Suspect]
     Indication: HYPERTENSION
     Dosage: 10 MG, QD
     Route: 048
     Dates: end: 20140401
  2. CITRAFLEET [Suspect]
     Indication: COLONOSCOPY
     Dosage: 1 DF, BID
     Route: 048
     Dates: start: 20140331, end: 20140331
  3. TRANSIPEG                          /00754501/ [Suspect]
     Indication: COLONOSCOPY
     Dosage: 4 DF, QD
     Route: 048
     Dates: start: 20140331, end: 20140331
  4. VERATRAN [Concomitant]
     Indication: PRODUCT USED FOR UNKNOWN INDICATION
     Dosage: 2.5 MG, QD
  5. TANAKAN                            /01003101/ [Concomitant]
     Indication: PRODUCT USED FOR UNKNOWN INDICATION

REACTIONS (6)
  - Hyponatraemia [Recovered/Resolved]
  - Hypokalaemia [Recovered/Resolved]
  - Epilepsy [Recovered/Resolved]
  - Electrocardiogram change [Recovered/Resolved]
  - Diarrhoea [Recovered/Resolved]
  - Vomiting [Recovered/Resolved]
